FAERS Safety Report 4911945-8 (Version None)
Quarter: 2006Q1

REPORT INFORMATION
  Report Type: 
  Country: None (occurrence: None)
  Receive Date: 20060213
  Receipt Date: 20060203
  Transmission Date: 20060701
  Serious: Yes (Hospitalization, Other)
  Sender: FDA-Public Use
  Company Number: HQWYE156121OCT05

PATIENT
  Age: 63 Year
  Sex: Female

DRUGS (10)
  1. PANTOLOC                                         (PANTOPRAZOLE) [Suspect]
     Indication: DYSPEPSIA
     Dosage: 40 MG 1X PER 1 DAY ORAL
     Route: 048
     Dates: end: 20050419
  2. NEXIUM [Suspect]
     Indication: DYSPEPSIA
     Dosage: 20 MG 2X PER 1 DAY
     Dates: end: 20050518
  3. LIORESAL [Concomitant]
  4. MARINOL [Concomitant]
  5. ERCOQUIN                          (HYDROXYCHLOROQUINE SULFATE) [Concomitant]
  6. SPASMOLYT                            (TROSPIUM CHLORIDE) [Concomitant]
  7. ALPRAZOLAM [Concomitant]
  8. VITAMINS (VITAMINS) [Concomitant]
  9. CLOBETASOL PROPIONATE                    (CLOBETASOL PROPIONATE) [Concomitant]
  10. CUCURBITA               (CUCURBITA) [Concomitant]

REACTIONS (3)
  - ALANINE AMINOTRANSFERASE INCREASED [None]
  - ANTINUCLEAR ANTIBODY POSITIVE [None]
  - CUTANEOUS LUPUS ERYTHEMATOSUS [None]
